FAERS Safety Report 4865344-8 (Version None)
Quarter: 2005Q4

REPORT INFORMATION
  Report Type: 
  Country: None (occurrence: None)
  Receive Date: 20051223
  Receipt Date: 20051215
  Transmission Date: 20060501
  Serious: Yes (Life-Threatening)
  Sender: FDA-Public Use
  Company Number: FR-BRISTOL-MYERS SQUIBB COMPANY-13223482

PATIENT
  Age: 49 Year
  Sex: Male

DRUGS (4)
  1. ERBITUX [Suspect]
     Indication: COLORECTAL CANCER
     Route: 042
     Dates: start: 20051118, end: 20051118
  2. SOLU-MEDROL [Concomitant]
     Indication: PREMEDICATION
     Route: 042
  3. POLARAMINE [Concomitant]
     Indication: PREMEDICATION
     Route: 042
  4. AZANTAC [Concomitant]
     Indication: PREMEDICATION
     Route: 042

REACTIONS (6)
  - ANAPHYLACTIC SHOCK [None]
  - BRADYCARDIA [None]
  - BRONCHOSPASM [None]
  - HYPERSENSITIVITY [None]
  - HYPOTENSION [None]
  - NAUSEA [None]
